FAERS Safety Report 4890712-8 (Version None)
Quarter: 2006Q1

REPORT INFORMATION
  Report Type: 
  Country: None (occurrence: None)
  Receive Date: 20060125
  Receipt Date: 20030425
  Transmission Date: 20060701
  Serious: Yes (Other)
  Sender: FDA-Public Use
  Company Number: US-BRISTOL-MYERS SQUIBB COMPANY-12258596

PATIENT
  Age: 46 Year
  Sex: Female

DRUGS (5)
  1. STADOL [Suspect]
     Indication: BACK PAIN
     Route: 045
     Dates: start: 19991215, end: 20010201
  2. HYDROCODONE + ACETAMINOPHEN [Concomitant]
  3. TOPROL-XL [Concomitant]
  4. IBUPROFEN [Concomitant]
  5. ULTRAM [Concomitant]

REACTIONS (1)
  - DEPENDENCE [None]
